FAERS Safety Report 21048113 (Version 3)
Quarter: 2023Q1

REPORT INFORMATION
  Report Type: Report from Study
  Country: GR (occurrence: GR)
  Receive Date: 20220706
  Receipt Date: 20230223
  Transmission Date: 20230418
  Serious: Yes (Other)
  Sender: FDA-Public Use
  Company Number: GR-JNJFOC-20220662581

PATIENT
  Sex: Male
  Weight: 83 kg

DRUGS (2)
  1. REMICADE [Suspect]
     Active Substance: INFLIXIMAB
     Indication: Psoriasis
     Route: 041
     Dates: start: 20150522, end: 20160413
  2. SECUKINUMAB [Concomitant]
     Active Substance: SECUKINUMAB
     Dosage: CONTINUED (DATE OF LAST ADMINISTRATION PRIOR TO THE EVENT WAS IN MAY-2022).
     Dates: start: 20160420

REACTIONS (1)
  - Hodgkin^s disease [Not Recovered/Not Resolved]

NARRATIVE: CASE EVENT DATE: 20220608
